FAERS Safety Report 17990683 (Version 2)
Quarter: 2020Q3

REPORT INFORMATION
  Report Type: Spontaneous
  Country: US (occurrence: US)
  Receive Date: 20200707
  Receipt Date: 20200821
  Transmission Date: 20201103
  Serious: No
  Sender: FDA-Public Use
  Company Number: US-TAKEDA-2020TUS029287

PATIENT
  Age: 67 Year
  Sex: Male
  Weight: 95.24 kg

DRUGS (6)
  1. HIKMA?FEBUXOSTAT [Suspect]
     Active Substance: FEBUXOSTAT
     Indication: GOUT
     Dosage: 40 MILLIGRAM, QD
     Route: 048
  2. CENTRUM SILVER                     /02363801/ [Concomitant]
     Active Substance: MINERALS\VITAMINS
     Dosage: UNK, Q4WEEKS
     Route: 065
  3. STATIN                             /00036501/ [Concomitant]
     Active Substance: NYSTATIN
     Dosage: 10 MILLIGRAM, QD
     Route: 065
  4. VITAMIN D3 [Concomitant]
     Active Substance: CHOLECALCIFEROL
     Dosage: 6000 INTERNATIONAL UNIT, 1/WEEK
     Route: 065
  5. VITAMIN C [Concomitant]
     Active Substance: ASCORBIC ACID
     Dosage: 1000 MILLIGRAM, QD
     Route: 065
  6. ASPIRIN                            /00002701/ [Concomitant]
     Active Substance: ASPIRIN
     Dosage: 81 MILLIGRAM, Q3WEEKS
     Route: 065

REACTIONS (7)
  - Visual impairment [Unknown]
  - Peripheral vascular disorder [Unknown]
  - Negative thoughts [Unknown]
  - Tinnitus [Unknown]
  - Peripheral coldness [Unknown]
  - Headache [Unknown]
  - Low density lipoprotein increased [Unknown]
